FAERS Safety Report 6986205-4 (Version None)
Quarter: 2010Q3

REPORT INFORMATION
  Report Type: 
  Country: None (occurrence: None)
  Receive Date: 20100915
  Receipt Date: 20090608
  Transmission Date: 20110219
  Serious: No
  Sender: FDA-Public Use
  Company Number: US-WYE-H09665509

PATIENT
  Sex: Female
  Weight: 56.3 kg

DRUGS (4)
  1. PRISTIQ [Suspect]
     Indication: ANXIETY
     Route: 048
     Dates: start: 20090601
  2. CLONAZEPAM [Concomitant]
  3. SYMBICORT [Concomitant]
  4. TRAZODONE HCL [Concomitant]

REACTIONS (2)
  - INSOMNIA [None]
  - NAUSEA [None]
